FAERS Safety Report 6247730-7 (Version None)
Quarter: 2009Q2

REPORT INFORMATION
  Report Type: 
  Country: None (occurrence: None)
  Receive Date: 20090626
  Receipt Date: 20090618
  Transmission Date: 20091009
  Serious: Yes (Other)
  Sender: FDA-Public Use
  Company Number: PHHO2009KR06180

PATIENT
  Sex: Female
  Weight: 48 kg

DRUGS (4)
  1. ZOLEDRONIC ACID [Suspect]
     Indication: MULTIPLE MYELOMA
     Dosage: 4 MG EVERY 3-4 WEEKS
     Route: 042
     Dates: start: 20090109, end: 20090506
  2. CHEMOTHERAPEUTICS NOS [Concomitant]
     Dosage: UNK
     Dates: start: 20090506
  3. PREDNISOLONE [Concomitant]
  4. MELPHALAN HYDROCHLORIDE [Concomitant]

REACTIONS (4)
  - ERYTHEMA [None]
  - OSTEONECROSIS [None]
  - PAIN IN JAW [None]
  - SWELLING [None]
